FAERS Safety Report 14073454 (Version 1)
Quarter: 2017Q4

REPORT INFORMATION
  Report Type: Spontaneous
  Country: None (occurrence: TR)
  Receive Date: 20171010
  Receipt Date: 20171010
  Transmission Date: 20180321
  Serious: Yes (Other)
  Sender: FDA-Public Use
  Company Number: TR-LABORATOIRE HRA PHARMA-2029500

PATIENT
  Sex: Female

DRUGS (1)
  1. ELLA [Suspect]
     Active Substance: ULIPRISTAL ACETATE
     Indication: POST COITAL CONTRACEPTION
     Route: 048
     Dates: start: 20170824, end: 20170824

REACTIONS (4)
  - Menstruation delayed [Recovered/Resolved]
  - Uterine haemorrhage [Not Recovered/Not Resolved]
  - Pruritus genital [Not Recovered/Not Resolved]
  - Uterine enlargement [Not Recovered/Not Resolved]
